FAERS Safety Report 25989187 (Version 2)
Quarter: 2025Q4

REPORT INFORMATION
  Report Type: Spontaneous
  Country: EG (occurrence: EG)
  Receive Date: 20251103
  Receipt Date: 20251121
  Transmission Date: 20260118
  Serious: Yes (Other)
  Sender: NOVO NORDISK
  Company Number: EG-NOVOPROD-1550259

PATIENT
  Sex: Male
  Weight: 34 kg

DRUGS (3)
  1. TRESIBA [Suspect]
     Active Substance: INSULIN DEGLUDEC
     Indication: Type 1 diabetes mellitus
     Dosage: 20 IU, QD (NIGHT)
     Route: 058
  2. NOVORAPID [Suspect]
     Active Substance: INSULIN ASPART
     Indication: Type 1 diabetes mellitus
     Dosage: 6U WITH BREAKFAST , 8 OR 9U WITH LUNCH AND 6U WITH DINNER
     Route: 058
  3. FEROGLOBIN [COPPER SULFATE;FERROUS FUMARATE;FOLIC ACID;PYRIDOXINE HYDR [Concomitant]
     Indication: Mineral supplementation
     Dosage: 1 CAPSULE/MORNING AFTER BREAKFAST OR AFTER LUNCH DAY
     Route: 048

REACTIONS (2)
  - Growth retardation [Not Recovered/Not Resolved]
  - Hyperglycaemia [Recovered/Resolved]
